FAERS Safety Report 11636382 (Version 1)
Quarter: 2015Q4

REPORT INFORMATION
  Report Type: Spontaneous
  Country: US (occurrence: None)
  Receive Date: 20151015
  Receipt Date: 20151015
  Transmission Date: 20160304
  Serious: Yes (Disabling)
  Sender: FDA-Public Use
  Company Number: None

PATIENT
  Age: 57 Year
  Sex: Female
  Weight: 70.76 kg

DRUGS (6)
  1. CHANTIX [Suspect]
     Active Substance: VARENICLINE TARTRATE
     Indication: SMOKING CESSATION THERAPY
     Route: 048
     Dates: start: 20151002, end: 20151011
  2. LIPITOR [Concomitant]
     Active Substance: ATORVASTATIN CALCIUM
  3. PRESET IDIOM LUTIEN [Concomitant]
  4. SYNTHESIS [Concomitant]
  5. LAMOTRIGINE. [Concomitant]
     Active Substance: LAMOTRIGINE
  6. CELESTE [Concomitant]

REACTIONS (5)
  - Self-injurious ideation [None]
  - Nausea [None]
  - Middle insomnia [None]
  - Micturition urgency [None]
  - Agitation [None]

NARRATIVE: CASE EVENT DATE: 20151002
